FAERS Safety Report 12907159 (Version 1)
Quarter: 2016Q4

REPORT INFORMATION
  Report Type: Report from Study
  Country: DE (occurrence: DE)
  Receive Date: 20161103
  Receipt Date: 20161103
  Transmission Date: 20170207
  Serious: Yes (Hospitalization, Other)
  Sender: FDA-Public Use
  Company Number: DE-CELGENEUS-DEU-2014123495

PATIENT
  Age: 81 Year
  Sex: Male
  Weight: 77 kg

DRUGS (3)
  1. AZACITIDINE INJECTABLE [Suspect]
     Active Substance: AZACITIDINE
     Indication: MYELODYSPLASTIC SYNDROME
     Route: 058
     Dates: start: 20141124, end: 20141128
  2. AZACITIDINE INJECTABLE [Suspect]
     Active Substance: AZACITIDINE
     Route: 058
  3. ROMIDEPSIN [Suspect]
     Active Substance: ROMIDEPSIN
     Indication: MYELODYSPLASTIC SYNDROME
     Route: 041
     Dates: start: 20141201, end: 20150302

REACTIONS (4)
  - Febrile infection [Recovered/Resolved]
  - Gastric polyps [Recovered/Resolved]
  - Febrile infection [Recovered/Resolved]
  - Gastritis erosive [Recovered/Resolved]

NARRATIVE: CASE EVENT DATE: 20141209
